FAERS Safety Report 7115318-1 (Version None)
Quarter: 2010Q4

REPORT INFORMATION
  Report Type: 
  Country: None (occurrence: None)
  Receive Date: 20101122
  Receipt Date: 20101109
  Transmission Date: 20110411
  Serious: Yes (Death)
  Sender: FDA-Public Use
  Company Number: JP-TYCO HEALTHCARE/MALLINCKRODT-T201002253

PATIENT
  Sex: Male

DRUGS (2)
  1. METHADONE HCL [Suspect]
     Indication: PAIN
     Dosage: 30 MG, TID
     Route: 048
     Dates: start: 20101014, end: 20101105
  2. METHADONE HCL [Suspect]
     Dosage: 45 MG, TID
     Route: 048
     Dates: start: 20101106, end: 20101109

REACTIONS (1)
  - GASTRIC CANCER [None]
